FAERS Safety Report 5828226-0 (Version None)
Quarter: 2008Q3

REPORT INFORMATION
  Report Type: 
  Country: None (occurrence: None)
  Receive Date: 20080729
  Receipt Date: 20080716
  Transmission Date: 20090109
  Serious: Yes (Hospitalization, Other)
  Sender: FDA-Public Use
  Company Number: PHNU2008DE01271

PATIENT
  Age: 36 Year
  Sex: Female
  Weight: 55 kg

DRUGS (3)
  1. SANDIMMUNE [Suspect]
     Indication: RENAL TRANSPLANT
     Dosage: 250MG/DAY, ORAL
     Route: 048
     Dates: start: 19900101, end: 20070901
  2. CICLORAL HEXAL (NGX) (CICLOSPORIN) [Suspect]
     Indication: RENAL TRANSPLANT
     Dosage: 250MG/DAY, ORAL
     Route: 048
     Dates: start: 19900101, end: 20070901
  3. PROGRAF [Suspect]
     Indication: RENAL TRANSPLANT
     Dosage: 2MG/DAY, ORAL
     Route: 048
     Dates: start: 20070901, end: 20071001

REACTIONS (24)
  - AORTIC VALVE INCOMPETENCE [None]
  - BLISTER [None]
  - BLOOD CREATININE INCREASED [None]
  - DERMATITIS ATOPIC [None]
  - DISEASE RECURRENCE [None]
  - ECZEMA [None]
  - ERYTHEMA [None]
  - GLOMERULAR FILTRATION RATE DECREASED [None]
  - HAEMATOCRIT DECREASED [None]
  - HAEMOGLOBIN DECREASED [None]
  - INTERTRIGO [None]
  - LYMPHOCYTE PERCENTAGE DECREASED [None]
  - MEAN CELL HAEMOGLOBIN CONCENTRATION DECREASED [None]
  - MEAN CELL HAEMOGLOBIN DECREASED [None]
  - NEURODERMATITIS [None]
  - NEUTROPHIL PERCENTAGE INCREASED [None]
  - PRURITUS [None]
  - RASH PAPULAR [None]
  - SCAB [None]
  - SKIN EXFOLIATION [None]
  - SKIN LESION [None]
  - STRESS [None]
  - TYPE IV HYPERSENSITIVITY REACTION [None]
  - URINARY TRACT INFECTION [None]
